FAERS Safety Report 21660215 (Version 1)
Quarter: 2022Q4

REPORT INFORMATION
  Report Type: Spontaneous
  Country: US (occurrence: None)
  Receive Date: 20221130
  Receipt Date: 20221130
  Transmission Date: 20230112
  Serious: Yes (Other)
  Sender: FDA-Public Use
  Company Number: US-ROCHE-3226564

PATIENT

DRUGS (1)
  1. XOLAIR [Suspect]
     Active Substance: OMALIZUMAB
     Indication: Product used for unknown indication
     Route: 042

REACTIONS (6)
  - Autoimmune disorder [Unknown]
  - Angioedema [Unknown]
  - Splenomegaly [Unknown]
  - Malaise [Unknown]
  - Hepatomegaly [Unknown]
  - Urticaria [Unknown]
